FAERS Safety Report 4604053-7 (Version None)
Quarter: 2005Q1

REPORT INFORMATION
  Report Type: 
  Country: None (occurrence: None)
  Receive Date: 20050308
  Receipt Date: 20050308
  Transmission Date: 20050727
  Serious: Yes (Hospitalization)
  Sender: FDA-Public Use
  Company Number: None

PATIENT
  Sex: Female
  Weight: 65.318 kg

DRUGS (1)
  1. ALINIA [Suspect]
     Indication: INFECTION PARASITIC
     Dosage: 1       Q12 HOURS ORAL
     Route: 048
     Dates: start: 20050223, end: 20050226

REACTIONS (16)
  - ABDOMINAL DISTENSION [None]
  - ALCOHOL USE [None]
  - ARRHYTHMIA [None]
  - BLOOD PRESSURE SYSTOLIC INCREASED [None]
  - CHEST DISCOMFORT [None]
  - CHILLS [None]
  - CONDITION AGGRAVATED [None]
  - DIZZINESS [None]
  - DYSPNOEA [None]
  - FEELING HOT [None]
  - HYPERHIDROSIS [None]
  - HYPOAESTHESIA [None]
  - NAUSEA [None]
  - PARAESTHESIA [None]
  - RASH ERYTHEMATOUS [None]
  - TACHYCARDIA [None]
